FAERS Safety Report 24158285 (Version 1)
Quarter: 2024Q3

REPORT INFORMATION
  Report Type: Spontaneous
  Country: US (occurrence: None)
  Receive Date: 20240731
  Receipt Date: 20240731
  Transmission Date: 20241017
  Serious: Yes (Hospitalization)
  Sender: Public
  Company Number: None

PATIENT
  Age: 54 Year
  Sex: Female
  Weight: 93.9 kg

DRUGS (4)
  1. JARDIANCE [Suspect]
     Active Substance: EMPAGLIFLOZIN
     Indication: Type 2 diabetes mellitus
     Dosage: 10 MG DAILY ORAL
     Route: 048
     Dates: start: 20240719, end: 20240726
  2. METFORMIN [Concomitant]
     Dates: start: 20240622
  3. SEMAGLUTIDE [Concomitant]
     Dates: start: 20240710, end: 20240727
  4. LISINOPRIL [Concomitant]
     Dates: start: 20221118

REACTIONS (1)
  - Euglycaemic diabetic ketoacidosis [None]

NARRATIVE: CASE EVENT DATE: 20240727
